FAERS Safety Report 4973005-X (Version None)
Quarter: 2006Q2

REPORT INFORMATION
  Report Type: 
  Country: None (occurrence: None)
  Receive Date: 20060414
  Receipt Date: 20060405
  Transmission Date: 20061013
  Serious: Yes (Hospitalization)
  Sender: FDA-Public Use
  Company Number: FR-GLAXOSMITHKLINE-B0419761A

PATIENT
  Age: 59 Year
  Sex: Female

DRUGS (6)
  1. FRAXIPARINE [Suspect]
     Indication: THROMBOSIS PROPHYLAXIS
     Dosage: 10000IUAX PER DAY
     Route: 058
     Dates: start: 20060303, end: 20060308
  2. PERFALGAN [Suspect]
     Indication: CHEST PAIN
     Dosage: 3G PER DAY
     Route: 042
     Dates: start: 20060303, end: 20060305
  3. PROPOFOL [Suspect]
     Indication: CHEST PAIN
     Dosage: 6TAB PER DAY
     Route: 048
     Dates: start: 20060305, end: 20060308
  4. AUGMENTIN '125' [Concomitant]
     Indication: LUNG DISORDER
     Dosage: 3G PER DAY
     Route: 042
     Dates: start: 20060303, end: 20060310
  5. ZOCOR [Concomitant]
     Indication: HYPERCHOLESTEROLAEMIA
     Dosage: 10MG PER DAY
     Route: 048
  6. LECTIL [Concomitant]
     Dosage: 16MG PER DAY
     Route: 048

REACTIONS (8)
  - ALANINE AMINOTRANSFERASE INCREASED [None]
  - ASPARTATE AMINOTRANSFERASE INCREASED [None]
  - BLOOD ALKALINE PHOSPHATASE INCREASED [None]
  - HEADACHE [None]
  - HEPATOCELLULAR DAMAGE [None]
  - HYPERTHERMIA [None]
  - LUNG DISORDER [None]
  - NECK PAIN [None]
